FAERS Safety Report 13094570 (Version 1)
Quarter: 2017Q1

REPORT INFORMATION
  Report Type: Spontaneous
  Country: US (occurrence: US)
  Receive Date: 20170106
  Receipt Date: 20170106
  Transmission Date: 20170428
  Serious: Yes (Other)
  Sender: FDA-Public Use
  Company Number: US-TEVA-726899USA

PATIENT
  Age: 55 Year
  Sex: Female

DRUGS (12)
  1. COPAXONE [Suspect]
     Active Substance: GLATIRAMER ACETATE
     Indication: MULTIPLE SCLEROSIS
     Route: 058
     Dates: start: 20161028
  2. CITALOPRAM [Concomitant]
     Active Substance: CITALOPRAM HYDROBROMIDE
  3. TIZANIDINE. [Concomitant]
     Active Substance: TIZANIDINE
  4. BUTAL/APAP [Concomitant]
  5. CELECOXIB. [Concomitant]
     Active Substance: CELECOXIB
  6. LYRICA [Concomitant]
     Active Substance: PREGABALIN
  7. NEXIUM [Concomitant]
     Active Substance: ESOMEPRAZOLE MAGNESIUM
  8. OXCARBAXEPIN [Concomitant]
  9. FIORICET [Concomitant]
     Active Substance: ACETAMINOPHEN\BUTALBITAL\CAFFEINE
  10. MAGNESIUM [Concomitant]
     Active Substance: MAGNESIUM
  11. OXYBUTYNIN [Concomitant]
     Active Substance: OXYBUTYNIN
  12. HYDROCODONE [Concomitant]
     Active Substance: HYDROCODONE

REACTIONS (2)
  - Headache [Not Recovered/Not Resolved]
  - Multiple sclerosis relapse [Unknown]

NARRATIVE: CASE EVENT DATE: 201612
